FAERS Safety Report 5983391-X (Version None)
Quarter: 2008Q4

REPORT INFORMATION
  Report Type: 
  Country: None (occurrence: None)
  Receive Date: 20081208
  Receipt Date: 20080909
  Transmission Date: 20090506
  Serious: No
  Sender: FDA-Public Use
  Company Number: US-BAYER-200814655BCC

PATIENT
  Age: 80 Year
  Sex: Male
  Weight: 70 kg

DRUGS (8)
  1. ALEVE [Suspect]
     Indication: DRUG USE FOR UNKNOWN INDICATION
     Dosage: AS USED: 220 MG  UNIT DOSE: 220 MG
     Route: 048
     Dates: start: 20080909
  2. ALEVE [Suspect]
     Dosage: TOTAL DAILY DOSE: 1320 MG  UNIT DOSE: 220 MG
     Route: 048
     Dates: start: 20080908
  3. PLAVIX [Concomitant]
  4. ZOCOR [Concomitant]
  5. METOPROLOL TARTRATE [Concomitant]
  6. VALSARTAN [Concomitant]
  7. ASPIRIN [Concomitant]
  8. PRILOSEC [Concomitant]

REACTIONS (1)
  - NO ADVERSE EVENT [None]
